FAERS Safety Report 7764039 (Version 2)
Quarter: 2015Q1

REPORT INFORMATION
  Report Type: Spontaneous
  Country: JP (occurrence: JP)
  Receive Date: 20110118
  Receipt Date: 20150324
  Transmission Date: 20150721
  Serious: Yes (Death, Life-Threatening, Other)
  Sender: FDA-Public Use
  Company Number: JP-PFIZER INC-2010169555

PATIENT
  Age: 68 Year
  Sex: Male

DRUGS (1)
  1. SUTENT [Suspect]
     Active Substance: SUNITINIB MALATE
     Indication: RENAL CELL CARCINOMA
     Dosage: 25 MG, CYCLIC (4-ADMINISTRATION/2-TIME-REST REGIMEN)
     Route: 048
     Dates: start: 201009

REACTIONS (5)
  - Oedema peripheral [Unknown]
  - Hypothyroidism [Unknown]
  - Renal cell carcinoma [Fatal]
  - Haemorrhage subcutaneous [Unknown]
  - Disease progression [Fatal]
